FAERS Safety Report 9465728 (Version 2)
Quarter: 2013Q3

REPORT INFORMATION
  Report Type: Spontaneous
  Country: US (occurrence: US)
  Receive Date: 20130820
  Receipt Date: 20130820
  Transmission Date: 20140515
  Serious: No
  Sender: FDA-Public Use
  Company Number: US-ASTELLAS-2013US006650

PATIENT
  Sex: Female

DRUGS (22)
  1. AMBISOME [Suspect]
     Indication: PNEUMONIA
     Dosage: 50 MG, UNKNOWN/D
     Route: 042
     Dates: start: 20121203, end: 20121204
  2. AMBISOME [Suspect]
     Indication: BLOOD OSMOLARITY DECREASED
  3. AMBISOME [Suspect]
     Indication: HYPONATRAEMIA
  4. AMBISOME [Suspect]
     Indication: ACUTE RESPIRATORY FAILURE
  5. AMBISOME [Suspect]
     Indication: HYPOXIA
  6. AMBISOME [Suspect]
     Indication: HYPOKALAEMIA
  7. AMBISOME [Suspect]
     Indication: ESSENTIAL HYPERTENSION
  8. AMBISOME [Suspect]
     Indication: BACK PAIN
  9. AMBISOME [Suspect]
     Indication: TOBACCO ABUSE
  10. AMBISOME [Suspect]
     Indication: OBESITY
  11. AMBISOME [Suspect]
     Indication: NAUSEA
  12. AMBISOME [Suspect]
     Indication: VOMITING
  13. AMBISOME [Suspect]
     Indication: DIARRHOEA
  14. AMBISOME [Suspect]
     Indication: DIABETES MELLITUS
  15. AMBISOME [Suspect]
     Indication: GASTROOESOPHAGEAL REFLUX DISEASE
  16. AMBISOME [Suspect]
     Indication: HYPERLIPIDAEMIA
  17. AMBISOME [Suspect]
     Indication: DRUG ABUSE
  18. AMBISOME [Suspect]
     Indication: ALCOHOL ABUSE
  19. AMBISOME [Suspect]
     Indication: VERTIGO POSITIONAL
  20. AMBISOME [Suspect]
     Indication: CONSCIOUSNESS FLUCTUATING
  21. AMBISOME [Suspect]
     Indication: PNEUMONIA VIRAL
  22. AMBISOME [Suspect]
     Indication: BODY MASS INDEX INCREASED

REACTIONS (1)
  - Off label use [Unknown]
